FAERS Safety Report 16998716 (Version 2)
Quarter: 2019Q4

REPORT INFORMATION
  Report Type: Spontaneous
  Country: FR (occurrence: FR)
  Receive Date: 20191106
  Receipt Date: 20191115
  Transmission Date: 20200122
  Serious: Yes (Death, Life-Threatening)
  Sender: FDA-Public Use
  Company Number: FR-TEVA-2019-FR-1131221

PATIENT
  Age: 61 Year
  Sex: Male
  Weight: 99 kg

DRUGS (8)
  1. OXYCONTIN [Concomitant]
     Active Substance: OXYCODONE HYDROCHLORIDE
  2. VFEND [Suspect]
     Active Substance: VORICONAZOLE
     Indication: BRONCHOPULMONARY ASPERGILLOSIS
     Route: 048
     Dates: start: 20180710
  3. MECIR [Concomitant]
     Active Substance: TAMSULOSIN HYDROCHLORIDE
  4. OXYNORM [Concomitant]
     Active Substance: OXYCODONE HYDROCHLORIDE
  5. TAVANIC [Concomitant]
     Active Substance: LEVOFLOXACIN
  6. ZELITREX [Concomitant]
     Active Substance: VALACYCLOVIR HYDROCHLORIDE
  7. BISOPROLOL (FUMARATE DE) [Suspect]
     Active Substance: BISOPROLOL FUMARATE
     Indication: HYPERTENSION
     Dosage: 1.25 MG
     Route: 048
     Dates: end: 20180713
  8. PRIVIGEN [Suspect]
     Active Substance: HUMAN IMMUNOGLOBULIN G
     Dates: start: 20180711, end: 20180711

REACTIONS (3)
  - Renal ischaemia [Not Recovered/Not Resolved]
  - Bradycardia [Not Recovered/Not Resolved]
  - Renal failure [Not Recovered/Not Resolved]

NARRATIVE: CASE EVENT DATE: 20180713
